FAERS Safety Report 21189645 (Version 1)
Quarter: 2022Q3

REPORT INFORMATION
  Report Type: Spontaneous
  Country: US (occurrence: None)
  Receive Date: 20220808
  Receipt Date: 20220808
  Transmission Date: 20221026
  Serious: Yes (Other)
  Sender: FDA-Public Use
  Company Number: None

PATIENT
  Sex: Female

DRUGS (10)
  1. HUMIRA [Suspect]
     Active Substance: ADALIMUMAB
     Indication: Ankylosing spondylitis
     Dosage: 40 MG/0.4ML??INJECT 40 MG UNDER THE SKINN (SUBCUTANEOUS INJECTION) EVERY OTHER WEEK ?
     Route: 058
     Dates: start: 20211223
  2. AMLODIPINE TAB [Concomitant]
  3. ASPIRIN [Concomitant]
     Active Substance: ASPIRIN
  4. ATORVASTATIN [Concomitant]
     Active Substance: ATORVASTATIN
  5. B-12 TAB [Concomitant]
  6. CARVEDILOL [Concomitant]
     Active Substance: CARVEDILOL
  7. CLONAZEP ODT [Concomitant]
  8. FIBER COMPLETE TAB [Concomitant]
  9. HYDROCHLOROTHIAZIDE\LOSARTAN POTASSIUM [Concomitant]
     Active Substance: HYDROCHLOROTHIAZIDE\LOSARTAN POTASSIUM
  10. OMEPRAZOLE TAB [Concomitant]

REACTIONS (2)
  - Fatigue [None]
  - Condition aggravated [None]
